FAERS Safety Report 15580855 (Version 1)
Quarter: 2018Q4

REPORT INFORMATION
  Report Type: Spontaneous
  Country: US (occurrence: US)
  Receive Date: 20181102
  Receipt Date: 20181102
  Transmission Date: 20190205
  Serious: Yes (Other)
  Sender: FDA-Public Use
  Company Number: US-ZYDUS-029458

PATIENT
  Age: 45 Year
  Sex: Female

DRUGS (2)
  1. BOSUTINIB [Suspect]
     Active Substance: BOSUTINIB
     Indication: CHEMOTHERAPY
     Route: 065
  2. OXYCODONE [Suspect]
     Active Substance: OXYCODONE
     Indication: PAIN
     Route: 065

REACTIONS (7)
  - Toxic leukoencephalopathy [Recovered/Resolved]
  - Seizure [Recovered/Resolved]
  - Fall [Recovered/Resolved]
  - Tremor [Recovered/Resolved]
  - Confusional state [Recovered/Resolved]
  - Somnolence [Recovered/Resolved]
  - Posterior reversible encephalopathy syndrome [Recovered/Resolved]
